FAERS Safety Report 19108280 (Version 2)
Quarter: 2021Q2

REPORT INFORMATION
  Report Type: Report from Study
  Country: US (occurrence: US)
  Receive Date: 20210408
  Receipt Date: 20210412
  Transmission Date: 20210717
  Serious: No
  Sender: FDA-Public Use
  Company Number: NVSC2021US074897

PATIENT
  Age: 51 Year
  Sex: Male
  Weight: 119.74 kg

DRUGS (2)
  1. COSENTYX [Suspect]
     Active Substance: SECUKINUMAB
     Indication: PSORIASIS
     Dosage: 300 MG, QMO
     Route: 065
     Dates: start: 20190725
  2. LOSARTAN. [Concomitant]
     Active Substance: LOSARTAN
     Indication: PRODUCT USED FOR UNKNOWN INDICATION
     Dosage: UNK, QD
     Route: 065

REACTIONS (4)
  - Suspected COVID-19 [Recovered/Resolved]
  - Fatigue [Unknown]
  - Pyrexia [Unknown]
  - Myalgia [Unknown]

NARRATIVE: CASE EVENT DATE: 20210101
